FAERS Safety Report 5379579-1 (Version None)
Quarter: 2007Q3

REPORT INFORMATION
  Report Type: 
  Country: None (occurrence: None)
  Receive Date: 20070706
  Receipt Date: 20070627
  Transmission Date: 20080115
  Serious: Yes (Hospitalization)
  Sender: FDA-Public Use
  Company Number: FR-ABBOTT-07P-056-0372757-00

PATIENT
  Age: 78 Year
  Sex: Male

DRUGS (12)
  1. DEPAKOTE [Suspect]
     Indication: BIPOLAR DISORDER
     Route: 048
     Dates: start: 20070501, end: 20070501
  2. DEPAKOTE [Suspect]
     Route: 048
     Dates: end: 20070501
  3. DEPAKOTE [Suspect]
     Route: 048
     Dates: start: 20070501, end: 20070604
  4. MEPROBAMATE [Concomitant]
     Indication: DRUG USE FOR UNKNOWN INDICATION
  5. MEMANTINE HCL [Concomitant]
     Indication: DEMENTIA
     Route: 048
     Dates: start: 20070201
  6. FLUINDIONE [Concomitant]
     Indication: ARRHYTHMIA
     Route: 048
  7. FLUINDIONE [Concomitant]
     Indication: ATRIAL FIBRILLATION
  8. DIGOXIN [Concomitant]
     Indication: ARRHYTHMIA
  9. DIGOXIN [Concomitant]
     Indication: ATRIAL FIBRILLATION
  10. ALLOPURINOL [Concomitant]
     Indication: HYPERURICAEMIA
     Route: 048
  11. GALANTAMINE HYDROBROMIDE [Concomitant]
     Indication: DEMENTIA
     Route: 048
     Dates: end: 20070201
  12. VENLAFAXIINE HCL [Concomitant]
     Indication: DRUG USE FOR UNKNOWN INDICATION
     Route: 048
     Dates: end: 20070101

REACTIONS (10)
  - ABNORMAL BEHAVIOUR [None]
  - AGITATION [None]
  - CEREBRAL ATROPHY [None]
  - CONFUSIONAL STATE [None]
  - INFLAMMATION [None]
  - INSOMNIA [None]
  - MONOCYTOSIS [None]
  - OPPOSITIONAL DEFIANT DISORDER [None]
  - PSYCHOMOTOR HYPERACTIVITY [None]
  - VIRAL INFECTION [None]
